FAERS Safety Report 14853806 (Version 1)
Quarter: 2018Q2

REPORT INFORMATION
  Report Type: Spontaneous
  Country: None (occurrence: US)
  Receive Date: 20180507
  Receipt Date: 20180507
  Transmission Date: 20180711
  Serious: No
  Sender: FDA-Public Use
  Company Number: US-MEDAC PHARMA, INC.-2047316

PATIENT
  Age: 54 Year
  Sex: Female
  Weight: 69.09 kg

DRUGS (1)
  1. RASUVO [Suspect]
     Active Substance: METHOTREXATE SODIUM
     Indication: RHEUMATOID ARTHRITIS

REACTIONS (1)
  - Injection site pain [Recovered/Resolved]
